FAERS Safety Report 14186064 (Version 2)
Quarter: 2017Q4

REPORT INFORMATION
  Report Type: Spontaneous
  Country: US (occurrence: US)
  Receive Date: 20171114
  Receipt Date: 20171121
  Transmission Date: 20180321
  Serious: No
  Sender: FDA-Public Use
  Company Number: US-CELGENEUS-USA-20171101220

PATIENT
  Age: 75 Year
  Sex: Male
  Weight: 78 kg

DRUGS (30)
  1. ZOFRAN [Concomitant]
     Active Substance: ONDANSETRON HYDROCHLORIDE
     Indication: VOMITING
  2. MEX [Concomitant]
     Indication: ODYNOPHAGIA
     Dosage: BENADRYL, MYLANTA, VISCOUS XYLOCAINE 80 ML EACH-15 ML 5 TIMES PER DAY
     Route: 065
  3. SINGULAIR [Concomitant]
     Active Substance: MONTELUKAST SODIUM
     Indication: PRODUCT USED FOR UNKNOWN INDICATION
     Dosage: 10 MILLIGRAM
     Route: 048
     Dates: start: 20171102, end: 20171104
  4. GABAPENTIN. [Concomitant]
     Active Substance: GABAPENTIN
     Indication: PAIN IN EXTREMITY
     Dosage: 200 MILLIGRAM
     Route: 048
  5. PANTOPRAZOLE [Concomitant]
     Active Substance: PANTOPRAZOLE
     Indication: PRODUCT USED FOR UNKNOWN INDICATION
     Dosage: 40 MILLIGRAM
     Route: 048
  6. ACETAMINOPHEN. [Concomitant]
     Active Substance: ACETAMINOPHEN
     Indication: PRODUCT USED FOR UNKNOWN INDICATION
     Dosage: 650 MILLIGRAM
     Route: 048
     Dates: start: 20171102, end: 20171104
  7. DEXAMETHASONE. [Concomitant]
     Active Substance: DEXAMETHASONE
     Dosage: 1 MILLIGRAM
     Route: 048
  8. OXYCODONE [Concomitant]
     Active Substance: OXYCODONE
     Indication: PRODUCT USED FOR UNKNOWN INDICATION
     Dosage: 10 MG PER 2 TABLET Q6H
     Route: 048
  9. ACYCLOVIR. [Concomitant]
     Active Substance: ACYCLOVIR
     Indication: PRODUCT USED FOR UNKNOWN INDICATION
     Dosage: 800 MILLIGRAM
     Route: 048
  10. POMALYST [Suspect]
     Active Substance: POMALIDOMIDE
     Indication: PLASMA CELL MYELOMA RECURRENT
     Dosage: 4 MILLIGRAM
     Route: 048
     Dates: start: 20171023
  11. POMALYST [Suspect]
     Active Substance: POMALIDOMIDE
     Dosage: 3 MILLIGRAM
     Route: 048
     Dates: start: 20171103
  12. DARATUMUMAB [Concomitant]
     Active Substance: DARATUMUMAB
     Indication: PRODUCT USED FOR UNKNOWN INDICATION
     Dosage: 600 MG/30 ML/HR INFUSION
     Route: 041
     Dates: start: 20171102, end: 20171104
  13. HYDROCODONE-ACETAMINOPHEN [Concomitant]
     Active Substance: ACETAMINOPHEN\HYDROCODONE
     Indication: PRODUCT USED FOR UNKNOWN INDICATION
     Dosage: 7.5 MG-325 MG
     Route: 048
  14. COMPAZINE [Concomitant]
     Active Substance: PROCHLORPERAZINE MALEATE
     Indication: NAUSEA
     Dosage: 10 MILLIGRAM
     Route: 048
  15. ZOFRAN [Concomitant]
     Active Substance: ONDANSETRON HYDROCHLORIDE
     Indication: NAUSEA
     Dosage: 8 MILLIGRAM
     Route: 048
  16. DEXAMETHASONE. [Concomitant]
     Active Substance: DEXAMETHASONE
     Indication: PRODUCT USED FOR UNKNOWN INDICATION
     Dosage: 20 MG PER 5 ML INJECTION DAILY
     Route: 041
     Dates: start: 20171102, end: 20171104
  17. POTASSIUM CHLORIDE. [Concomitant]
     Active Substance: POTASSIUM CHLORIDE
     Indication: PRODUCT USED FOR UNKNOWN INDICATION
     Dosage: 20 MILLIEQUIVALENTS
     Route: 048
  18. PAXIL [Concomitant]
     Active Substance: PAROXETINE HYDROCHLORIDE
     Indication: PRODUCT USED FOR UNKNOWN INDICATION
     Dosage: 40 MILLIGRAM
     Route: 048
  19. MONTELUKAST [Concomitant]
     Active Substance: MONTELUKAST SODIUM
     Indication: PRODUCT USED FOR UNKNOWN INDICATION
     Dosage: 10 MILLIGRAM
     Route: 048
     Dates: start: 20171024
  20. DEXAMETHASONE. [Concomitant]
     Active Substance: DEXAMETHASONE
     Dosage: TAKE 5 TABLETS ON DAYS 1,8,15,22 AND 1 TABLET ON DAYS 2,9,16
     Route: 048
  21. GLUCOTROL [Concomitant]
     Active Substance: GLIPIZIDE
     Indication: PRODUCT USED FOR UNKNOWN INDICATION
     Dosage: 5 MILLIGRAM
     Route: 048
  22. FERROUS SULFATE. [Concomitant]
     Active Substance: FERROUS SULFATE
     Indication: PRODUCT USED FOR UNKNOWN INDICATION
     Dosage: 650 MILLIGRAM
     Route: 048
  23. MIRALAX [Concomitant]
     Active Substance: POLYETHYLENE GLYCOL 3350
     Indication: PRODUCT USED FOR UNKNOWN INDICATION
     Dosage: 17 GM 1 CAPFUL
     Route: 048
  24. BENADRYL [Concomitant]
     Active Substance: DIPHENHYDRAMINE HYDROCHLORIDE
     Indication: PRODUCT USED FOR UNKNOWN INDICATION
     Dosage: 20 MG PER 5ML INJECTION
     Route: 041
     Dates: start: 20171102, end: 20171104
  25. ASPIRIN. [Concomitant]
     Active Substance: ASPIRIN
     Indication: PRODUCT USED FOR UNKNOWN INDICATION
     Route: 065
  26. COMPAZINE [Concomitant]
     Active Substance: PROCHLORPERAZINE MALEATE
     Indication: VOMITING
  27. ATORVASTATIN [Concomitant]
     Active Substance: ATORVASTATIN
     Indication: PRODUCT USED FOR UNKNOWN INDICATION
     Dosage: 40 MILLIGRAM
     Route: 048
  28. NALOXONE [Concomitant]
     Active Substance: NALOXONE
     Indication: PRODUCT USED FOR UNKNOWN INDICATION
     Dosage: 4 MG PER NOSTRIL EACH ONCE
     Route: 045
  29. DOCUSATE-SENNA [Concomitant]
     Indication: PRODUCT USED FOR UNKNOWN INDICATION
     Dosage: 50-8.6 MG 2 TABLET ORAL QHS
     Route: 048
  30. MONTELUKAST [Concomitant]
     Active Substance: MONTELUKAST SODIUM
     Dosage: 10 MILLIGRAM
     Route: 048
     Dates: start: 20171031

REACTIONS (2)
  - Abdominal pain upper [Unknown]
  - Fatigue [Recovered/Resolved]

NARRATIVE: CASE EVENT DATE: 201710
